FAERS Safety Report 9641863 (Version 1)
Quarter: 2013Q4

REPORT INFORMATION
  Report Type: Spontaneous
  Country: TR (occurrence: None)
  Receive Date: 20131021
  Receipt Date: 20131021
  Transmission Date: 20140711
  Serious: Yes (Hospitalization)
  Sender: FDA-Public Use
  Company Number: CLOZ20130017

PATIENT
  Age: 8 Year
  Sex: Male

DRUGS (2)
  1. CLONAZEPAM [Suspect]
     Route: 048
  2. PHENYTOIN [Suspect]
     Indication: PARTIAL SEIZURES

REACTIONS (2)
  - Drug reaction with eosinophilia and systemic symptoms [None]
  - Encephalitis [None]
